FAERS Safety Report 12131010 (Version 6)
Quarter: 2017Q3

REPORT INFORMATION
  Report Type: Report from Study
  Country: CO (occurrence: CO)
  Receive Date: 20160301
  Receipt Date: 20170808
  Transmission Date: 20171127
  Serious: Yes (Life-Threatening, Hospitalization, Other)
  Sender: FDA-Public Use
  Company Number: PHHY2015CO153716

PATIENT
  Age: 56 Year
  Sex: Male
  Weight: 80 kg

DRUGS (2)
  1. ATORVASTATIN [Concomitant]
     Active Substance: ATORVASTATIN
     Indication: PRODUCT USED FOR UNKNOWN INDICATION
     Dosage: 20 MG, QD
     Route: 065
  2. TASIGNA [Suspect]
     Active Substance: NILOTINIB
     Indication: CHRONIC MYELOID LEUKAEMIA
     Dosage: 150 MG, BID
     Route: 048
     Dates: start: 20120224

REACTIONS (22)
  - Apparent death [Unknown]
  - Tachycardia [Unknown]
  - Urinary tract obstruction [Unknown]
  - Chest pain [Unknown]
  - Decreased appetite [Unknown]
  - Splenomegaly [Unknown]
  - Asthenia [Unknown]
  - Arthralgia [Unknown]
  - General physical health deterioration [Unknown]
  - Hypokinesia [Unknown]
  - Pain in extremity [Unknown]
  - Penis disorder [Unknown]
  - Yellow skin [Unknown]
  - Weight decreased [Not Recovered/Not Resolved]
  - Pain [Unknown]
  - Myalgia [Unknown]
  - Blood pressure increased [Unknown]
  - Hiatus hernia [Unknown]
  - Dyspepsia [Unknown]
  - Fatigue [Unknown]
  - Diaphragmatic disorder [Unknown]
  - Bone pain [Unknown]

NARRATIVE: CASE EVENT DATE: 20120228
